FAERS Safety Report 8221410 (Version 2)
Quarter: 2017Q4

REPORT INFORMATION
  Report Type: Report from Study
  Country: US (occurrence: US)
  Receive Date: 20111102
  Receipt Date: 20171013
  Transmission Date: 20180321
  Serious: Yes (Other)
  Sender: FDA-Public Use
  Company Number: US-GLAXOSMITHKLINE-A0951422A

PATIENT
  Age: 68 Year
  Sex: Male
  Weight: 64.4 kg

DRUGS (11)
  1. CARMUSTINE [Suspect]
     Active Substance: CARMUSTINE
     Dates: start: 20101005, end: 20101005
  2. BACTRIM [Concomitant]
     Active Substance: SULFAMETHOXAZOLE\TRIMETHOPRIM
     Dosage: 800-160 MG, BID
     Route: 048
     Dates: start: 201010
  3. RITUXIMAB. [Suspect]
     Active Substance: RITUXIMAB
     Indication: DIFFUSE LARGE B-CELL LYMPHOMA
     Dosage: 656 MG, UNK
     Route: 042
     Dates: start: 20100728, end: 20100804
  4. ACYCLOVIR. [Concomitant]
     Active Substance: ACYCLOVIR
     Dosage: 400 MG, BID
     Route: 048
     Dates: start: 201010
  5. FLUCONAZOLE. [Concomitant]
     Active Substance: FLUCONAZOLE
     Dosage: 200 MG, 1D
     Route: 048
     Dates: start: 201010
  6. ETOPOSIDE. [Suspect]
     Active Substance: ETOPOSIDE
     Dates: start: 20101006, end: 20101009
  7. CYTARABINE. [Suspect]
     Active Substance: CYTARABINE
     Dates: start: 20101006, end: 20101009
  8. MELPHALAN. [Suspect]
     Active Substance: MELPHALAN
     Dates: start: 20101010, end: 20101010
  9. STUDY MEDICATION [Suspect]
     Active Substance: UNSPECIFIED INGREDIENT
     Indication: DIFFUSE LARGE B-CELL LYMPHOMA
     Route: 042
     Dates: start: 20100701, end: 20100805
  10. FOLIC ACID. [Concomitant]
     Active Substance: FOLIC ACID
     Indication: ANAEMIA PROPHYLAXIS
     Dosage: 1 MG, BID
     Dates: start: 201010
  11. MULTIVITAMIN [Concomitant]
     Active Substance: VITAMINS
     Indication: VITAMIN SUPPLEMENTATION
     Dosage: UNK, TID
     Dates: start: 201010

REACTIONS (1)
  - Engraft failure [Recovered/Resolved]

NARRATIVE: CASE EVENT DATE: 20101101
